FAERS Safety Report 13607598 (Version 1)
Quarter: 2017Q2

REPORT INFORMATION
  Report Type: Spontaneous
  Country: US (occurrence: US)
  Receive Date: 20170602
  Receipt Date: 20170602
  Transmission Date: 20170830
  Serious: No
  Sender: FDA-Public Use
  Company Number: US-009507513-1705USA007002

PATIENT
  Sex: Female

DRUGS (2)
  1. CETROTIDE [Suspect]
     Active Substance: CETRORELIX ACETATE
  2. GANIRELIX ACETATE INJECTION [Suspect]
     Active Substance: GANIRELIX ACETATE
     Indication: INFERTILITY
     Dosage: 250 MICROGRAM, QD
     Route: 058
     Dates: start: 20170511

REACTIONS (5)
  - Injection site erythema [Unknown]
  - Injection site swelling [Unknown]
  - Hypersensitivity [Unknown]
  - Injection site haemorrhage [Unknown]
  - Injection site pruritus [Unknown]
